FAERS Safety Report 23097794 (Version 1)
Quarter: 2023Q4

REPORT INFORMATION
  Report Type: Spontaneous
  Country: DE (occurrence: DE)
  Receive Date: 20231023
  Receipt Date: 20231023
  Transmission Date: 20240109
  Serious: Yes (Congenital Anomaly)
  Sender: FDA-Public Use
  Company Number: DE-EMBRYOTOX-202201756

PATIENT
  Age: 0 Year
  Sex: Female

DRUGS (10)
  1. COPAXONE [Suspect]
     Active Substance: GLATIRAMER ACETATE
     Indication: Multiple sclerosis
     Dosage: 40 MILLIGRAM DAILY;
     Route: 065
     Dates: start: 20210906, end: 20220627
  2. MECLIZINE HYDROCHLORIDE [Suspect]
     Active Substance: MECLIZINE HYDROCHLORIDE
     Indication: Hyperemesis gravidarum
     Dosage: 25 MILLIGRAM DAILY;
     Dates: start: 20211105, end: 20211122
  3. DOXYLAMINE SUCCINATE\PYRIDOXINE HYDROCHLORIDE [Suspect]
     Active Substance: DOXYLAMINE SUCCINATE\PYRIDOXINE HYDROCHLORIDE
     Indication: Hyperemesis gravidarum
     Dosage: 40 MILLIGRAM DAILY;
     Dates: start: 20211025, end: 20211104
  4. PROGESTERONE [Concomitant]
     Active Substance: PROGESTERONE
     Indication: Prophylaxis of abortion
     Dosage: 200 MILLIGRAM DAILY;
     Dates: start: 20211025, end: 20211124
  5. RHOPHYLAC [Concomitant]
     Active Substance: HUMAN RHO(D) IMMUNE GLOBULIN
     Indication: Prophylaxis against Rh isoimmunisation
     Dosage: 300 MICROGRAM DAILY;
     Dates: start: 20220331, end: 20220331
  6. DILAPAN-S [Concomitant]
     Indication: Labour induction
     Dates: start: 20220625, end: 20220625
  7. COMIRNATY MONOVALENT (BIONTECH/PFIZER) [Concomitant]
     Indication: COVID-19 immunisation
     Dosage: 3RD VACCINATION
     Dates: start: 20211216, end: 20211216
  8. FOLIC ACID [Concomitant]
     Active Substance: FOLIC ACID
     Indication: Prophylaxis of neural tube defect
     Dates: start: 20210906, end: 20220627
  9. VITAMIN D [Concomitant]
     Active Substance: VITAMIN D NOS
     Indication: Multiple sclerosis
     Dosage: 2000 IU (INTERNATIONAL UNIT) DAILY;
     Dates: start: 20210906, end: 20220627
  10. MISOPROSTOL [Concomitant]
     Active Substance: MISOPROSTOL
     Indication: Labour induction
     Dosage: 100 MICROGRAM DAILY;
     Dates: start: 20220626, end: 20220626

REACTIONS (2)
  - Fistula [Not Recovered/Not Resolved]
  - Foetal exposure during pregnancy [Unknown]
